FAERS Safety Report 5385086-2 (Version None)
Quarter: 2007Q3

REPORT INFORMATION
  Report Type: 
  Country: None (occurrence: None)
  Receive Date: 20070710
  Receipt Date: 20070710
  Transmission Date: 20080115
  Serious: Yes (Hospitalization)
  Sender: FDA-Public Use
  Company Number: None

PATIENT
  Sex: Female
  Weight: 83.9 kg

DRUGS (7)
  1. CARBOPLATIN [Suspect]
     Indication: BREAST CANCER METASTATIC
     Dosage: 2 AUC WEEKLY - 1X IV
     Route: 042
     Dates: start: 20070626
  2. CETUXIMAB [Suspect]
     Indication: BREAST CANCER METASTATIC
     Dosage: 400 MG/M2 WEEKLY 1X IV
     Route: 042
     Dates: start: 20070626
  3. ONDANSETRON [Concomitant]
  4. OXYCONTIN [Concomitant]
  5. OXYCODONE HCL [Concomitant]
  6. CIPROFLOXACIN [Concomitant]
  7. OPHTHALMIC DROPS [Concomitant]

REACTIONS (1)
  - PULMONARY EMBOLISM [None]
